FAERS Safety Report 4727438-7 (Version None)
Quarter: 2005Q3

REPORT INFORMATION
  Report Type: 
  Country: None (occurrence: None)
  Receive Date: 20050727
  Receipt Date: 20050727
  Transmission Date: 20060218
  Serious: Yes (Hospitalization)
  Sender: FDA-Public Use
  Company Number: None

PATIENT
  Age: 26 Year
  Sex: Female
  Weight: 56.6996 kg

DRUGS (3)
  1. GADOLINEUM [Suspect]
     Indication: SCAN WITH CONTRAST
     Dosage: 20 ML IV OTO
     Route: 042
     Dates: start: 20050225
  2. BIRTH CONTROL PILL [Concomitant]
  3. ASPIRIN [Concomitant]

REACTIONS (2)
  - THROAT IRRITATION [None]
  - THROAT TIGHTNESS [None]
